FAERS Safety Report 8480868-2 (Version None)
Quarter: 2012Q2

REPORT INFORMATION
  Report Type: 
  Country: None (occurrence: None)
  Receive Date: 20120622
  Receipt Date: 20120613
  Transmission Date: 20120825
  Serious: Yes (Other)
  Sender: FDA-Public Use
  Company Number: 2012SP031023

PATIENT
  Sex: Male

DRUGS (6)
  1. COPEGUS [Suspect]
     Indication: HEPATITIS C
     Dosage: 600 MG;QD;PO
     Route: 048
     Dates: start: 20120201, end: 20120509
  2. SEROQUEL [Concomitant]
  3. METHADONE HCL [Concomitant]
  4. PEGASYS [Suspect]
     Indication: HEPATITIS C
     Dosage: 180 MCG;QW;SC
     Route: 058
     Dates: start: 20120201, end: 20120509
  5. VICTRELIS [Suspect]
     Indication: HEPATITIS C
     Dosage: 800 MG;TID;PO
     Route: 048
     Dates: start: 20120201, end: 20120509
  6. EFFEXOR [Concomitant]

REACTIONS (5)
  - RETINOPATHY [None]
  - MYOPIA [None]
  - BLINDNESS [None]
  - RETINAL EXUDATES [None]
  - EYE HAEMORRHAGE [None]
